FAERS Safety Report 25584861 (Version 1)
Quarter: 2025Q3

REPORT INFORMATION
  Report Type: Spontaneous
  Country: US (occurrence: None)
  Receive Date: 20250717
  Receipt Date: 20250717
  Transmission Date: 20251020
  Serious: Yes (Death)
  Sender: FDA-CTU
  Company Number: None

PATIENT
  Age: 37 Year
  Sex: Male
  Weight: 157.5 kg

DRUGS (5)
  1. HERBALS\MITRAGYNINE [Suspect]
     Active Substance: HERBALS\MITRAGYNINE
     Indication: Alcohol withdrawal syndrome
     Dosage: 12.5 ML DAILY ORAL
     Route: 048
  2. LOSARTAN [Concomitant]
     Active Substance: LOSARTAN
  3. Eliquios [Concomitant]
  4. 5-hour energy drinks [Concomitant]
  5. BENADRYL [Concomitant]
     Active Substance: DIPHENHYDRAMINE HYDROCHLORIDE

REACTIONS (7)
  - Pulmonary embolism [None]
  - Cerebrovascular accident [None]
  - Myocardial infarction [None]
  - Substance use [None]
  - Intentional overdose [None]
  - Blood pressure increased [None]
  - Thrombosis [None]

NARRATIVE: CASE EVENT DATE: 19240924
